FAERS Safety Report 8593827-6 (Version None)
Quarter: 2012Q3

REPORT INFORMATION
  Report Type: 
  Country: None (occurrence: None)
  Receive Date: 20120814
  Receipt Date: 20120809
  Transmission Date: 20120928
  Serious: Yes (Hospitalization)
  Sender: FDA-Public Use
  Company Number: IN-PFIZER INC-2012195647

PATIENT
  Age: 11 Month
  Sex: Male
  Weight: 6 kg

DRUGS (1)
  1. AMLODIPINE BESYLATE [Suspect]
     Dosage: 15 MG, 3X/DAY

REACTIONS (9)
  - DRUG DISPENSING ERROR [None]
  - VOMITING [None]
  - RENAL FAILURE [None]
  - LOSS OF CONSCIOUSNESS [None]
  - CARDIAC FAILURE CONGESTIVE [None]
  - METABOLIC ACIDOSIS [None]
  - HYPERGLYCAEMIA [None]
  - ACCIDENTAL OVERDOSE [None]
  - SHOCK [None]
